FAERS Safety Report 9858134 (Version 1)
Quarter: 2014Q1

REPORT INFORMATION
  Report Type: Spontaneous
  Country: US (occurrence: None)
  Receive Date: 20140130
  Receipt Date: 20140130
  Transmission Date: 20141002
  Serious: Yes (Other)
  Sender: FDA-Public Use
  Company Number: None

PATIENT
  Age: 65 Year
  Sex: Female
  Weight: 110.22 kg

DRUGS (1)
  1. GAMUNEX-C [Suspect]
     Indication: IMMUNODEFICIENCY COMMON VARIABLE
     Dosage: 45 G EVERY 4 WEEKS INTRAVENOUS
     Route: 042
     Dates: start: 20140129, end: 20140129

REACTIONS (2)
  - Rash papular [None]
  - Infusion related reaction [None]
